FAERS Safety Report 19299379 (Version 2)
Quarter: 2021Q3

REPORT INFORMATION
  Report Type: Spontaneous
  Country: IT (occurrence: IT)
  Receive Date: 20210525
  Receipt Date: 20210902
  Transmission Date: 20211014
  Serious: Yes (Hospitalization, Other)
  Sender: FDA-Public Use
  Company Number: IT-LUPIN PHARMACEUTICALS INC.-2021-07786

PATIENT
  Age: 51 Year
  Sex: Female

DRUGS (13)
  1. PROPOFOL. [Concomitant]
     Active Substance: PROPOFOL
     Indication: DRUG THERAPY
     Dosage: UNK
     Route: 065
  2. GENTAMICIN. [Concomitant]
     Active Substance: GENTAMICIN
     Indication: ANTIBIOTIC THERAPY
     Dosage: UNK
     Route: 065
  3. INSULIN [Concomitant]
     Active Substance: INSULIN NOS
     Indication: DIABETES MELLITUS
     Dosage: UNK FAST AND LONG?ACTING INSULIN
     Route: 065
  4. LEVETIRACETAM. [Suspect]
     Active Substance: LEVETIRACETAM
     Indication: STATUS EPILEPTICUS
     Dosage: UNK, INFUSION
     Route: 065
  5. VALPROATE [Suspect]
     Active Substance: VALPROIC ACID
     Indication: STATUS EPILEPTICUS
     Dosage: UNK
     Route: 065
  6. EPINEPHRINE. [Suspect]
     Active Substance: EPINEPHRINE
     Indication: SEPTIC SHOCK
     Dosage: 1 MICROGRAM/KILOGRAM, BID
     Route: 065
  7. PHENYTOIN SODIUM. [Suspect]
     Active Substance: PHENYTOIN SODIUM
     Indication: STATUS EPILEPTICUS
     Dosage: 500 MILLIGRAM, QD
     Route: 065
  8. ANIDULAFUNGIN [Concomitant]
     Active Substance: ANIDULAFUNGIN
     Indication: ANTIBIOTIC THERAPY
     Dosage: UNK
     Route: 065
  9. CLINDAMYCIN. [Concomitant]
     Active Substance: CLINDAMYCIN
     Indication: ANTIBIOTIC THERAPY
     Dosage: UNK
     Route: 065
  10. FLUPHENAZINE [Concomitant]
     Active Substance: FLUPHENAZINE
     Indication: PERSONALITY DISORDER
     Dosage: UNK DEPOT FORMULATION
     Route: 016
  11. NORADRENALINE [Suspect]
     Active Substance: NOREPINEPHRINE
     Indication: SEPTIC SHOCK
     Dosage: 1 MICROGRAM/KILOGRAM
     Route: 065
  12. CEFTRIAXONE. [Concomitant]
     Active Substance: CEFTRIAXONE
     Indication: ANTIBIOTIC THERAPY
     Dosage: UNK
     Route: 065
  13. RAMIPRIL. [Concomitant]
     Active Substance: RAMIPRIL
     Indication: HYPERTENSION
     Dosage: 5 MILLIGRAM, QD
     Route: 065

REACTIONS (6)
  - Stress cardiomyopathy [Recovered/Resolved]
  - Haemodynamic instability [Recovered/Resolved]
  - Ventricular tachycardia [Recovered/Resolved]
  - Cardiotoxicity [Recovered/Resolved]
  - Drug ineffective [Unknown]
  - Toxicity to various agents [Unknown]
